FAERS Safety Report 8848204 (Version 1)
Quarter: 2012Q4

REPORT INFORMATION
  Report Type: 
  Country: US (occurrence: US)
  Receive Date: 20121018
  Receipt Date: 20121018
  Transmission Date: 20130627
  Serious: Yes (Death, Hospitalization, Other)
  Sender: FDA-Public Use
  Company Number: US-ROCHE-1022819

PATIENT
  Sex: Male
  Weight: 90.35 kg

DRUGS (4)
  1. ZELBORAF [Suspect]
     Indication: MALIGNANT MELANOMA
     Route: 048
     Dates: start: 20111109
  2. KEPPRA [Concomitant]
     Indication: CONVULSION
     Route: 048
  3. BYSTOLIC [Concomitant]
     Route: 048
  4. DECADRON [Concomitant]
     Dosage: Tapered off
     Route: 065

REACTIONS (10)
  - Neoplasm [Unknown]
  - Squamous cell carcinoma [Unknown]
  - Basal cell carcinoma [Unknown]
  - Pain in extremity [Unknown]
  - Myalgia [Unknown]
  - Skin lesion [Unknown]
  - Muscle tightness [Unknown]
  - Muscular weakness [Unknown]
  - Rash [Unknown]
  - Death [Fatal]
